FAERS Safety Report 17191475 (Version 13)
Quarter: 2021Q2

REPORT INFORMATION
  Report Type: Spontaneous
  Country: US (occurrence: US)
  Receive Date: 20191223
  Receipt Date: 20210510
  Transmission Date: 20210716
  Serious: Yes (Other)
  Sender: FDA-Public Use
  Company Number: US-PFIZER INC-2019549430

PATIENT
  Age: 74 Year
  Sex: Female

DRUGS (5)
  1. CRESTOR [Concomitant]
     Active Substance: ROSUVASTATIN CALCIUM
     Indication: BLOOD CHOLESTEROL INCREASED
  2. CETIRIZINE [Concomitant]
     Active Substance: CETIRIZINE HYDROCHLORIDE
     Dosage: UNK
  3. PLAVIX [Concomitant]
     Active Substance: CLOPIDOGREL BISULFATE
  4. XELJANZ XR [Suspect]
     Active Substance: TOFACITINIB CITRATE
     Indication: RHEUMATOID ARTHRITIS
     Dosage: 11 MG, 1X/DAY
     Route: 048
     Dates: start: 20191218
  5. LASIX [Concomitant]
     Active Substance: FUROSEMIDE
     Dosage: UNK

REACTIONS (21)
  - Sinus disorder [Unknown]
  - Headache [Unknown]
  - Back pain [Unknown]
  - Rheumatoid arthritis [Recovered/Resolved]
  - Asthenia [Unknown]
  - Hypersensitivity [Unknown]
  - Fall [Unknown]
  - Diabetes mellitus [Unknown]
  - Localised infection [Unknown]
  - Blood pressure increased [Unknown]
  - Cough [Unknown]
  - Sinus congestion [Unknown]
  - Pain [Not Recovered/Not Resolved]
  - Choking [Unknown]
  - Joint swelling [Recovering/Resolving]
  - Peripheral swelling [Not Recovered/Not Resolved]
  - Eye pain [Unknown]
  - Sensitivity to weather change [Unknown]
  - Breast cancer [Unknown]
  - Nocturnal dyspnoea [Unknown]
  - Pain in extremity [Unknown]

NARRATIVE: CASE EVENT DATE: 202005
